FAERS Safety Report 8141311-6 (Version None)
Quarter: 2012Q1

REPORT INFORMATION
  Report Type: 
  Country: None (occurrence: None)
  Receive Date: 20120216
  Receipt Date: 20120206
  Transmission Date: 20120608
  Serious: Yes (Death)
  Sender: FDA-Public Use
  Company Number: FR-ELI_LILLY_AND_COMPANY-FR201105007939

PATIENT
  Sex: Female
  Weight: 45 kg

DRUGS (6)
  1. ZYPREXA [Suspect]
     Indication: PARANOIA
     Dosage: 10 MG, QD
     Route: 048
  2. HYDROXYZINE [Concomitant]
     Indication: DEPRESSION
     Dosage: UNK
     Route: 048
     Dates: end: 20101120
  3. CYMBALTA [Suspect]
     Dosage: UNK, UNKNOWN
     Dates: start: 20101129
  4. CYMBALTA [Suspect]
     Indication: DEPRESSION
     Dosage: 60 MG, QD
     Route: 048
     Dates: start: 20100501
  5. ZYPREXA [Suspect]
     Dosage: UNK, UNKNOWN
     Dates: start: 20101129
  6. HYDROXYZINE [Concomitant]
     Dosage: UNK, UNKNOWN
     Dates: start: 20101129

REACTIONS (3)
  - TOXICITY TO VARIOUS AGENTS [None]
  - COMPLETED SUICIDE [None]
  - INTENTIONAL OVERDOSE [None]
